FAERS Safety Report 10514128 (Version 2)
Quarter: 2014Q4

REPORT INFORMATION
  Report Type: Report from Study
  Country: JP (occurrence: JP)
  Receive Date: 20141013
  Receipt Date: 20141013
  Transmission Date: 20150528
  Serious: Yes (Other)
  Sender: FDA-Public Use
  Company Number: JP-CUBIST PHARMACEUTICALS, INC.-2014CBST000444

PATIENT

DRUGS (10)
  1. CLARITIN REDITABS [Suspect]
     Active Substance: LORATADINE
     Indication: PROPHYLAXIS
     Dosage: 10 MG, ONCE DAILY
     Route: 048
     Dates: start: 20130730, end: 20131009
  2. EXCEGRAN [Concomitant]
     Active Substance: ZONISAMIDE
     Indication: PROPHYLAXIS
     Dosage: 100 MG, TID
     Route: 048
     Dates: start: 20111121, end: 20130826
  3. GLIMICRON [Concomitant]
     Active Substance: GLICLAZIDE
     Indication: PRODUCT USED FOR UNKNOWN INDICATION
     Dosage: 20 MG, ONCE DAILY
     Route: 048
     Dates: start: 20130625
  4. DAPTOMYCIN. [Suspect]
     Active Substance: DAPTOMYCIN
     Indication: STAPHYLOCOCCAL SEPSIS
     Dosage: 5.7 MG/KG, ONCE DAILY
     Route: 041
     Dates: start: 20130729, end: 20130908
  5. KEPPRA [Concomitant]
     Active Substance: LEVETIRACETAM
     Indication: PRODUCT USED FOR UNKNOWN INDICATION
     Dosage: 1.5 G, BID
     Route: 048
     Dates: start: 20111121
  6. DAPTOMYCIN. [Suspect]
     Active Substance: DAPTOMYCIN
     Indication: OFF LABEL USE
  7. RISPERDAL [Suspect]
     Active Substance: RISPERIDONE
     Indication: PRODUCT USED FOR UNKNOWN INDICATION
     Dosage: 1 MG, ONCE DAILY
     Route: 048
     Dates: start: 20130827
  8. ROHYPNOL [Concomitant]
     Active Substance: FLUNITRAZEPAM
     Indication: PRODUCT USED FOR UNKNOWN INDICATION
     Dosage: 1 MG, ONCE DAILY
     Route: 048
     Dates: start: 20130826
  9. CERCINE [Suspect]
     Active Substance: DIAZEPAM
     Indication: PRODUCT USED FOR UNKNOWN INDICATION
     Dosage: 5 MG, ONCE DAILY
     Route: 048
     Dates: start: 20111121, end: 20131009
  10. TRANSAMIN [Concomitant]
     Active Substance: TRANEXAMIC ACID
     Indication: PRODUCT USED FOR UNKNOWN INDICATION
     Dosage: 500 MG, TID
     Route: 048
     Dates: start: 20130430, end: 20131009

REACTIONS (3)
  - Epilepsy [Recovered/Resolved]
  - Blood creatine phosphokinase increased [Recovered/Resolved]
  - Off label use [Unknown]

NARRATIVE: CASE EVENT DATE: 20130813
